FAERS Safety Report 5737780-9 (Version None)
Quarter: 2008Q2

REPORT INFORMATION
  Report Type: 
  Country: None (occurrence: None)
  Receive Date: 20080513
  Receipt Date: 20080513
  Transmission Date: 20081010
  Serious: Yes (Other)
  Sender: FDA-Public Use
  Company Number: None

PATIENT
  Age: 84 Year
  Sex: Male
  Weight: 72.5755 kg

DRUGS (1)
  1. DIGOXIN  .0125  BERTEK [Suspect]
     Dosage: 1 PILL DAILY
     Dates: start: 20080427, end: 20080512

REACTIONS (2)
  - DIZZINESS [None]
  - LOSS OF CONSCIOUSNESS [None]
